FAERS Safety Report 6992336-5 (Version None)
Quarter: 2010Q3

REPORT INFORMATION
  Report Type: 
  Country: None (occurrence: None)
  Receive Date: 20100915
  Receipt Date: 20100831
  Transmission Date: 20110219
  Serious: Yes (Other)
  Sender: FDA-Public Use
  Company Number: AE-2010-236

PATIENT
  Sex: Male

DRUGS (1)
  1. PRIAIT (ZICONOTIDE INTRATHECAL INFUSION) SOLUTION [Suspect]
     Dosage: INTRATHECAL
     Route: 037
     Dates: start: 20100101

REACTIONS (3)
  - IMPLANT SITE PAIN [None]
  - PANCREATITIS [None]
  - PSEUDOCYST [None]
